FAERS Safety Report 17427051 (Version 2)
Quarter: 2020Q1

REPORT INFORMATION
  Report Type: Spontaneous
  Country: FR (occurrence: FR)
  Receive Date: 20200218
  Receipt Date: 20200224
  Transmission Date: 20200409
  Serious: Yes (Death, Hospitalization)
  Sender: FDA-Public Use
  Company Number: FR-ROCHE-2550011

PATIENT
  Age: 73 Year
  Sex: Male
  Weight: 64 kg

DRUGS (1)
  1. TECENTRIQ [Suspect]
     Active Substance: ATEZOLIZUMAB
     Indication: BRONCHIAL CARCINOMA
     Route: 041
     Dates: start: 20191223

REACTIONS (3)
  - Condition aggravated [Fatal]
  - General physical health deterioration [Fatal]
  - Pyrexia [Fatal]

NARRATIVE: CASE EVENT DATE: 20200106
